FAERS Safety Report 6863035-5 (Version None)
Quarter: 2010Q3

REPORT INFORMATION
  Report Type: 
  Country: None (occurrence: None)
  Receive Date: 20100721
  Receipt Date: 20100708
  Transmission Date: 20110219
  Serious: Yes (Hospitalization)
  Sender: FDA-Public Use
  Company Number: GB-JNJFOC-20100703182

PATIENT
  Age: 21 Year
  Sex: Male
  Weight: 40 kg

DRUGS (7)
  1. PARACETAMOL [Suspect]
     Route: 048
  2. PARACETAMOL [Suspect]
     Indication: PROCEDURAL PAIN
     Dosage: 4 1/2 DAYS
     Route: 048
  3. BISOPROLOL FUMARATE [Concomitant]
  4. AMPICILLIN SODIUM/SULBACTAM SODIUM [Concomitant]
     Indication: PROPHYLAXIS
  5. METOCLOPRAMIDE [Concomitant]
  6. RAMIPRIL [Concomitant]
  7. RANITIDINE [Concomitant]
     Route: 042

REACTIONS (2)
  - LIVER FUNCTION TEST ABNORMAL [None]
  - LIVER INJURY [None]
